FAERS Safety Report 10210612 (Version 2)
Quarter: 2014Q2

REPORT INFORMATION
  Report Type: Report from Study
  Country: US (occurrence: US)
  Receive Date: 20140602
  Receipt Date: 20140630
  Transmission Date: 20141212
  Serious: Yes (Other)
  Sender: FDA-Public Use
  Company Number: US-SA-2014SA068176

PATIENT
  Age: 63 Year
  Sex: Female

DRUGS (7)
  1. LANTUS [Suspect]
     Indication: PRODUCT USED FOR UNKNOWN INDICATION
     Route: 058
  2. APIDRA [Concomitant]
  3. AMLODIPINE [Concomitant]
     Indication: BLOOD PRESSURE
     Dates: start: 2012
  4. PRISTIQ [Concomitant]
     Indication: DEPRESSION
     Dates: start: 2012
  5. LIPITOR [Concomitant]
     Indication: BLOOD CHOLESTEROL
     Dates: start: 2012
  6. BAYASPIRIN [Concomitant]
     Indication: CARDIAC DISORDER
     Dates: start: 2012
  7. METOPROLOL TARTRATE [Concomitant]
     Indication: BLOOD PRESSURE
     Dates: start: 2012

REACTIONS (1)
  - Cerebrovascular accident [Unknown]
